FAERS Safety Report 15109704 (Version 1)
Quarter: 2018Q3

REPORT INFORMATION
  Report Type: Spontaneous
  Country: CN (occurrence: CN)
  Receive Date: 20180705
  Receipt Date: 20180705
  Transmission Date: 20181010
  Serious: Yes (Hospitalization, Other)
  Sender: FDA-Public Use
  Company Number: CN-GLAXOSMITHKLINE-CN2018119198

PATIENT
  Age: 81 Year
  Sex: Female
  Weight: 45 kg

DRUGS (2)
  1. VOLTAREN [Suspect]
     Active Substance: DICLOFENAC SODIUM
     Indication: PAIN
     Dosage: 75 MG, QD
     Route: 048
     Dates: start: 20180418, end: 20180423
  2. CLOPIDOGREL [Concomitant]
     Active Substance: CLOPIDOGREL BISULFATE
     Indication: PLATELET AGGREGATION ABNORMAL
     Dosage: 25 MG, QD
     Route: 048

REACTIONS (3)
  - Upper gastrointestinal haemorrhage [Recovering/Resolving]
  - Abdominal distension [Recovering/Resolving]
  - Faeces discoloured [Recovering/Resolving]

NARRATIVE: CASE EVENT DATE: 20180423
